FAERS Safety Report 19312956 (Version 1)
Quarter: 2021Q2

REPORT INFORMATION
  Report Type: Spontaneous
  Country: US (occurrence: US)
  Receive Date: 20210526
  Receipt Date: 20210526
  Transmission Date: 20210717
  Serious: No
  Sender: FDA-Public Use
  Company Number: None

PATIENT
  Age: 39 Year
  Sex: Female
  Weight: 62.14 kg

DRUGS (1)
  1. MIRENA [Suspect]
     Active Substance: LEVONORGESTREL
     Dates: start: 20210525

REACTIONS (7)
  - Vomiting [None]
  - Hypoaesthesia oral [None]
  - Pain [None]
  - Dizziness [None]
  - Nausea [None]
  - Syncope [None]
  - Hypoaesthesia [None]

NARRATIVE: CASE EVENT DATE: 20210525
